FAERS Safety Report 8955818 (Version 2)
Quarter: 2012Q4

REPORT INFORMATION
  Report Type: 
  Country: JP (occurrence: JP)
  Receive Date: 20121210
  Receipt Date: 20121211
  Transmission Date: 20130627
  Serious: Yes (Hospitalization)
  Sender: FDA-Public Use
  Company Number: JP-009507513-1212JPN002371

PATIENT
  Age: 73 Year
  Sex: Female
  Weight: 45 kg

DRUGS (6)
  1. PEGINTRON [Suspect]
     Indication: CHRONIC HEPATITIS C
     Dosage: 1.33 Microgram per kilogram, qw
     Route: 058
     Dates: start: 20120820, end: 20121116
  2. PEGINTRON [Suspect]
     Dosage: 1.5 Microgram per kilogram, qw
     Route: 058
     Dates: start: 20121128
  3. REBETOL [Suspect]
     Indication: CHRONIC HEPATITIS C
     Dosage: 400 mg, qd
     Route: 048
     Dates: start: 20120820, end: 20120909
  4. TELAVIC [Suspect]
     Indication: CHRONIC HEPATITIS C
     Dosage: 1500 mg, qd
     Route: 048
     Dates: start: 20120820, end: 20121117
  5. LOXONIN [Concomitant]
     Indication: PROPHYLAXIS
     Dosage: UNK, prn
     Route: 048
     Dates: start: 20120820
  6. MUCOSTA [Concomitant]
     Indication: PROPHYLAXIS
     Dosage: UNK, prn
     Route: 048
     Dates: start: 20120820

REACTIONS (1)
  - Pleural effusion [Recovered/Resolved]
